FAERS Safety Report 5882641-8 (Version None)
Quarter: 2008Q3

REPORT INFORMATION
  Report Type: 
  Country: None (occurrence: None)
  Receive Date: 20080913
  Receipt Date: 20080811
  Transmission Date: 20090109
  Serious: No
  Sender: FDA-Public Use
  Company Number: US-ABBOTT-08P-163-0470189-00

PATIENT
  Sex: Female
  Weight: 77.634 kg

DRUGS (5)
  1. HUMIRA [Suspect]
     Indication: RHEUMATOID ARTHRITIS
     Route: 058
     Dates: start: 20080416, end: 20080522
  2. HUMIRA [Suspect]
     Dates: start: 20080811
  3. METHOTREXATE [Concomitant]
     Indication: RHEUMATOID ARTHRITIS
     Dosage: 8 (2.5MG) TABLETS
     Route: 048
     Dates: start: 20040101
  4. PREDNISONE TAB [Concomitant]
     Indication: STEROID THERAPY
     Route: 048
     Dates: start: 20050101
  5. PYRIDOXINE HYDROCHLORIDE [Concomitant]
     Indication: MEDICAL DIET
     Route: 048

REACTIONS (4)
  - COUGH [None]
  - PYREXIA [None]
  - RHINORRHOEA [None]
  - TUBERCULIN TEST POSITIVE [None]
